FAERS Safety Report 8533916-5 (Version None)
Quarter: 2012Q3

REPORT INFORMATION
  Report Type: 
  Country: None (occurrence: None)
  Receive Date: 20120724
  Receipt Date: 20120717
  Transmission Date: 20120928
  Serious: Yes (Hospitalization)
  Sender: FDA-Public Use
  Company Number: IT-ROCHE-1087940

PATIENT
  Sex: Female

DRUGS (5)
  1. PROZAC [Concomitant]
  2. ENTUMIN [Suspect]
     Indication: SUICIDE ATTEMPT
     Dosage: 100 MG ORAL GGT
     Route: 048
     Dates: start: 20120705, end: 20120705
  3. CITALOPRAM [Concomitant]
  4. CLONAZEPAM [Suspect]
     Indication: SUICIDE ATTEMPT
     Route: 048
     Dates: start: 20120705, end: 20120705
  5. VALPROATE SODIUM [Concomitant]

REACTIONS (2)
  - COMA [None]
  - RESPIRATORY DEPRESSION [None]
